FAERS Safety Report 9626912 (Version 1)
Quarter: 2013Q4

REPORT INFORMATION
  Report Type: Spontaneous
  Country: US (occurrence: US)
  Receive Date: 20131016
  Receipt Date: 20131016
  Transmission Date: 20140711
  Serious: Yes (Hospitalization)
  Sender: FDA-Public Use
  Company Number: US-PFIZER INC-2013292142

PATIENT
  Age: 8 Year
  Sex: Male

DRUGS (4)
  1. PHENYTOIN [Suspect]
     Indication: GRAND MAL CONVULSION
     Dosage: 10 MG/KG, DAILY
  2. PRIMIDONE [Concomitant]
     Indication: GRAND MAL CONVULSION
     Dosage: 20 MG/KG, DAILY
  3. METHSUXIMIDE [Concomitant]
     Indication: GRAND MAL CONVULSION
     Dosage: 15 MG/KG, DAILY
  4. CARBAMAZEPINE [Concomitant]
     Indication: GRAND MAL CONVULSION
     Dosage: 30 MG/KG, DAILY

REACTIONS (2)
  - Choreoathetosis [Recovered/Resolved]
  - Dystonia [Recovered/Resolved]
